FAERS Safety Report 8591368-3 (Version None)
Quarter: 2012Q3

REPORT INFORMATION
  Report Type: 
  Country: None (occurrence: None)
  Receive Date: 20120803
  Receipt Date: 20120803
  Transmission Date: 20120928
  Serious: Yes (Other)
  Sender: FDA-Public Use
  Company Number: None

PATIENT
  Sex: Female

DRUGS (2)
  1. PROLIA [Suspect]
     Indication: BONE DENSITY DECREASED
     Dosage: 60 MG EVERY 6 MONTHS SUBDERMAL
     Route: 059
     Dates: start: 20110901
  2. PROLIA [Suspect]
     Indication: BONE DENSITY DECREASED
     Dosage: 60 MG EVERY 6 MONTHS SUBDERMAL
     Route: 059
     Dates: start: 20120301

REACTIONS (3)
  - PAIN IN EXTREMITY [None]
  - ABDOMINAL PAIN UPPER [None]
  - ASTHENIA [None]
